FAERS Safety Report 4423827-9 (Version None)
Quarter: 2004Q3

REPORT INFORMATION
  Report Type: 
  Country: None (occurrence: None)
  Receive Date: 20040715
  Receipt Date: 20030930
  Transmission Date: 20050211
  Serious: Yes (Death)
  Sender: FDA-Public Use
  Company Number: HQWYE943001OCT03

PATIENT
  Sex: Male

DRUGS (1)
  1. MYLOTARG [Suspect]
     Indication: DRUG USE FOR UNKNOWN INDICATION
     Dosage: DOSE AND DATES OF THERAPY NOT PROVIDED
     Dates: start: 20000101, end: 20000101

REACTIONS (1)
  - ANAPHYLACTIC REACTION [None]
